FAERS Safety Report 17561977 (Version 2)
Quarter: 2021Q2

REPORT INFORMATION
  Report Type: Spontaneous
  Country: US (occurrence: US)
  Receive Date: 20200319
  Receipt Date: 20210422
  Transmission Date: 20210716
  Serious: Yes (Other)
  Sender: FDA-Public Use
  Company Number: US-ASTRAZENECA-2020SE39074

PATIENT
  Age: 46 Year
  Sex: Female
  Weight: 70.3 kg

DRUGS (57)
  1. NEXIUM [Suspect]
     Active Substance: ESOMEPRAZOLE MAGNESIUM
     Indication: GASTROOESOPHAGEAL REFLUX DISEASE
     Route: 048
     Dates: start: 200201, end: 201701
  2. NEXIUM 24HR [Suspect]
     Active Substance: ESOMEPRAZOLE MAGNESIUM
     Indication: GASTROOESOPHAGEAL REFLUX DISEASE
     Route: 048
     Dates: start: 2015
  3. AMITRYIPTYLINE [Concomitant]
  4. SERTRALINE [Concomitant]
     Active Substance: SERTRALINE HYDROCHLORIDE
  5. PRILOSEC OTC [Suspect]
     Active Substance: OMEPRAZOLE MAGNESIUM
     Indication: GASTROOESOPHAGEAL REFLUX DISEASE
     Route: 048
     Dates: start: 2010
  6. DEXILANT [Suspect]
     Active Substance: DEXLANSOPRAZOLE
     Indication: GASTROOESOPHAGEAL REFLUX DISEASE
     Route: 065
     Dates: start: 200201, end: 201701
  7. PREVACID [Suspect]
     Active Substance: LANSOPRAZOLE
     Route: 065
     Dates: start: 200201, end: 201701
  8. PREVACID 24 HR [Suspect]
     Active Substance: LANSOPRAZOLE
     Route: 065
     Dates: start: 200201, end: 201701
  9. PROTONIX [Suspect]
     Active Substance: PANTOPRAZOLE SODIUM
     Indication: GASTROOESOPHAGEAL REFLUX DISEASE
     Route: 065
     Dates: start: 200201, end: 201701
  10. ZANTAC [Concomitant]
     Active Substance: RANITIDINE HYDROCHLORIDE
     Dates: start: 20081104, end: 20180618
  11. ZANTAC [Concomitant]
     Active Substance: RANITIDINE HYDROCHLORIDE
     Dates: start: 20180108, end: 20181009
  12. ROLAIDS [Concomitant]
     Active Substance: CALCIUM CARBONATE\MAGNESIUM HYDROXIDE
     Dates: start: 20180108, end: 20181009
  13. LORATADINE. [Concomitant]
     Active Substance: LORATADINE
  14. SYMBICORT [Concomitant]
     Active Substance: BUDESONIDE\FORMOTEROL FUMARATE DIHYDRATE
  15. STOOL SOFTENER (DOCUSATE) [Concomitant]
     Active Substance: DOCUSATE
  16. VALSARTAN. [Concomitant]
     Active Substance: VALSARTAN
  17. MELOXICAM. [Concomitant]
     Active Substance: MELOXICAM
  18. FLUOXETINE [Concomitant]
     Active Substance: FLUOXETINE HYDROCHLORIDE
  19. NEXIUM [Suspect]
     Active Substance: ESOMEPRAZOLE MAGNESIUM
     Indication: GASTROOESOPHAGEAL REFLUX DISEASE
     Route: 048
     Dates: start: 2002, end: 2017
  20. PRILOSEC [Suspect]
     Active Substance: OMEPRAZOLE MAGNESIUM
     Indication: GASTROOESOPHAGEAL REFLUX DISEASE
     Route: 048
     Dates: start: 200201, end: 201701
  21. PRILOSEC [Suspect]
     Active Substance: OMEPRAZOLE MAGNESIUM
     Indication: GASTROOESOPHAGEAL REFLUX DISEASE
     Dosage: GENERIC
     Route: 065
     Dates: start: 20131017
  22. CARBAMAZEPINE. [Concomitant]
     Active Substance: CARBAMAZEPINE
     Indication: ANTICONVULSANT DRUG LEVEL
     Dates: start: 20111130, end: 20120618
  23. ONDANSETRON [Concomitant]
     Active Substance: ONDANSETRON
     Indication: ANTIEMETIC SUPPORTIVE CARE
     Dates: start: 20150427, end: 20180801
  24. SINGULAIR [Concomitant]
     Active Substance: MONTELUKAST SODIUM
  25. BIOTIN [Concomitant]
     Active Substance: BIOTIN
  26. SUCRALFATE. [Concomitant]
     Active Substance: SUCRALFATE
  27. OLANZAPINE. [Concomitant]
     Active Substance: OLANZAPINE
  28. PRILOSEC [Suspect]
     Active Substance: OMEPRAZOLE MAGNESIUM
     Indication: GASTROOESOPHAGEAL REFLUX DISEASE
     Route: 048
     Dates: start: 20110121, end: 20170607
  29. DEXILANT [Suspect]
     Active Substance: DEXLANSOPRAZOLE
     Indication: GASTROOESOPHAGEAL REFLUX DISEASE
     Route: 065
     Dates: start: 20110831, end: 20170310
  30. NAPROXEN. [Concomitant]
     Active Substance: NAPROXEN
     Indication: PAIN
     Dates: start: 20160729, end: 20160828
  31. MULTIVITAMIN [Concomitant]
     Active Substance: VITAMINS
     Indication: DEFICIENCY ANAEMIA
     Dates: start: 2018
  32. ROLAIDS [Concomitant]
     Active Substance: CALCIUM CARBONATE\MAGNESIUM HYDROXIDE
     Dates: start: 2014, end: 2015
  33. CYCLOBENZAPRINE. [Concomitant]
     Active Substance: CYCLOBENZAPRINE
  34. FLURAZEPAM [Concomitant]
     Active Substance: FLURAZEPAM HYDROCHLORIDE
  35. CARBAMAZEPINE. [Concomitant]
     Active Substance: CARBAMAZEPINE
  36. MORPHINE [Concomitant]
     Active Substance: MORPHINE
  37. PROTONIX [Suspect]
     Active Substance: PANTOPRAZOLE SODIUM
     Indication: GASTROOESOPHAGEAL REFLUX DISEASE
     Dosage: GENERIC
     Route: 065
     Dates: start: 20121203, end: 20150429
  38. TUMS [Concomitant]
     Active Substance: CALCIUM CARBONATE
     Dates: start: 2014, end: 2015
  39. TUMS [Concomitant]
     Active Substance: CALCIUM CARBONATE
     Dates: start: 20170628
  40. ALBUTEROL. [Concomitant]
     Active Substance: ALBUTEROL
  41. EPIPEN [Concomitant]
     Active Substance: EPINEPHRINE
  42. PHENERGAN [Concomitant]
     Active Substance: PROMETHAZINE HYDROCHLORIDE
  43. DICLOFENAC [Concomitant]
     Active Substance: DICLOFENAC
  44. NEXIUM 24HR [Suspect]
     Active Substance: ESOMEPRAZOLE MAGNESIUM
     Indication: GASTROOESOPHAGEAL REFLUX DISEASE
     Route: 048
     Dates: start: 200201, end: 201701
  45. DEXILANT [Suspect]
     Active Substance: DEXLANSOPRAZOLE
     Indication: GASTROOESOPHAGEAL REFLUX DISEASE
     Dosage: GENERIC
     Route: 065
     Dates: start: 20150125, end: 20150731
  46. NARCAN [Concomitant]
     Active Substance: NALOXONE HYDROCHLORIDE
  47. VENTOLIN [Concomitant]
     Active Substance: ALBUTEROL SULFATE
  48. ACYCLOVIR. [Concomitant]
     Active Substance: ACYCLOVIR
  49. DIETHYLPROPION [Concomitant]
     Active Substance: DIETHYLPROPION
  50. LISINOPRIL. [Concomitant]
     Active Substance: LISINOPRIL
  51. ZIPRASIDONE. [Concomitant]
     Active Substance: ZIPRASIDONE
  52. AMLODIPINE [Concomitant]
     Active Substance: AMLODIPINE BESYLATE
     Indication: HYPERTENSION
     Dates: start: 20160517, end: 20180627
  53. ZOLOFT [Concomitant]
     Active Substance: SERTRALINE HYDROCHLORIDE
  54. SERTRALINE [Concomitant]
     Active Substance: SERTRALINE HYDROCHLORIDE
  55. LIDOCAINE. [Concomitant]
     Active Substance: LIDOCAINE
  56. PREGABALIN. [Concomitant]
     Active Substance: PREGABALIN
  57. TRAZODONE [Concomitant]
     Active Substance: TRAZODONE HYDROCHLORIDE

REACTIONS (5)
  - Tubulointerstitial nephritis [Not Recovered/Not Resolved]
  - Renal failure [Unknown]
  - End stage renal disease [Not Recovered/Not Resolved]
  - Chronic kidney disease [Not Recovered/Not Resolved]
  - Acute kidney injury [Not Recovered/Not Resolved]

NARRATIVE: CASE EVENT DATE: 2016
